FAERS Safety Report 18929510 (Version 1)
Quarter: 2021Q1

REPORT INFORMATION
  Report Type: Spontaneous
  Country: FR (occurrence: FR)
  Receive Date: 20210223
  Receipt Date: 20210223
  Transmission Date: 20210420
  Serious: Yes (Hospitalization)
  Sender: FDA-Public Use
  Company Number: FR-TEVA-2021-FR-1882356

PATIENT
  Age: 80 Year
  Sex: Female
  Weight: 79.5 kg

DRUGS (13)
  1. TAHOR [Suspect]
     Active Substance: ATORVASTATIN CALCIUM
     Indication: PROPHYLAXIS
     Dosage: 1 DF
     Route: 048
     Dates: end: 20201218
  2. BISOPROLOL (FUMARATE ACIDE DE) [Concomitant]
     Active Substance: BISOPROLOL FUMARATE
  3. ZOPICLONE [Concomitant]
     Active Substance: ZOPICLONE
  4. DOXYCYCLINE. [Concomitant]
     Active Substance: DOXYCYCLINE
  5. LEVOTHYROX [Concomitant]
     Active Substance: LEVOTHYROXINE
  6. FUROSEMIDE TEVA 500 MG, COMPRIME SECABLE [Suspect]
     Active Substance: FUROSEMIDE
     Indication: HYPERTENSION
     Dosage: 0.5 DF
     Route: 048
     Dates: end: 20201218
  7. LEVEMIR [Concomitant]
     Active Substance: INSULIN DETEMIR
  8. COUMADINE [Concomitant]
     Active Substance: WARFARIN SODIUM
  9. PERINDOPRIL [Suspect]
     Active Substance: PERINDOPRIL
     Indication: HYPERTENSION
     Dosage: 2 MG
     Route: 048
     Dates: end: 20201218
  10. VITAMINE B12 [Concomitant]
     Active Substance: CYANOCOBALAMIN
  11. METFORMINE ARROW 500 MG, COMPRIME PELLICULE [Suspect]
     Active Substance: METFORMIN HYDROCHLORIDE
     Indication: TYPE 2 DIABETES MELLITUS
     Dosage: 2 DF
     Route: 048
     Dates: end: 20201218
  12. PANTOPRAZOLE [Concomitant]
     Active Substance: PANTOPRAZOLE
  13. LANSOYL [Concomitant]
     Active Substance: MINERAL OIL

REACTIONS (2)
  - Lactic acidosis [Recovered/Resolved]
  - Acute kidney injury [Recovered/Resolved]

NARRATIVE: CASE EVENT DATE: 20201217
